FAERS Safety Report 13516425 (Version 1)
Quarter: 2017Q2

REPORT INFORMATION
  Report Type: Spontaneous
  Country: US (occurrence: US)
  Receive Date: 20170505
  Receipt Date: 20170505
  Transmission Date: 20170830
  Serious: No
  Sender: FDA-Public Use
  Company Number: US-ASTRAZENECA-2017SE46928

PATIENT
  Age: 71 Year
  Sex: Male
  Weight: 99 kg

DRUGS (11)
  1. NEXIUM 24HR [Suspect]
     Active Substance: ESOMEPRAZOLE MAGNESIUM
     Indication: DYSPEPSIA
     Dosage: 44.6 MG, ALTERNATE DAY (HE TAKES 2 NEXIUM 24HR ONE DAY AND TAKES 1 THE NEXT DAY. )
     Route: 048
  2. PERPHENAZINE-AMITRIPTYLINE [Concomitant]
     Active Substance: AMITRIPTYLINE\PERPHENAZINE
     Indication: GASTRIC DISORDER
     Dosage: 10 MG, UNK
  3. ZYRTEC [Concomitant]
     Active Substance: CETIRIZINE HYDROCHLORIDE
     Indication: HYPERSENSITIVITY
     Dosage: UNK, AS NEEDED
  4. TAMSULOSIN [Concomitant]
     Active Substance: TAMSULOSIN
     Indication: PROSTATIC DISORDER
     Dosage: 0.4 MG, 1X/DAY ^8 OR 10 YEARS^
  5. COENZYME Q10 [Concomitant]
     Active Substance: UBIDECARENONE
     Indication: BLOOD CHOLESTEROL
     Dosage: 100 MG, UNK
  6. SIMVASTATIN. [Concomitant]
     Active Substance: SIMVASTATIN
     Indication: BLOOD CHOLESTEROL
     Dosage: 40 MG, ALTERNATE DAY
  7. ATENOLOL. [Concomitant]
     Active Substance: ATENOLOL
     Indication: PALPITATIONS
     Dosage: 50 MG, 2X/DAY
  8. ATENOLOL. [Concomitant]
     Active Substance: ATENOLOL
     Indication: ARRHYTHMIA
     Dosage: 50 MG, 2X/DAY
  9. ALEVE [Concomitant]
     Active Substance: NAPROXEN SODIUM
     Indication: PAIN
     Dosage: 220 MG, AS NEEDED
  10. NEXIUM 24HR [Suspect]
     Active Substance: ESOMEPRAZOLE MAGNESIUM
     Indication: DYSPEPSIA
     Route: 048
  11. COENZYME Q10 [Concomitant]
     Active Substance: UBIDECARENONE
     Indication: VITAMIN SUPPLEMENTATION
     Dosage: 100 MG, UNK

REACTIONS (10)
  - Diarrhoea [Unknown]
  - Pain [Unknown]
  - Abdominal discomfort [Not Recovered/Not Resolved]
  - Flatulence [Unknown]
  - Intentional product misuse [Not Recovered/Not Resolved]
  - Back disorder [Recovering/Resolving]
  - Dyspepsia [Unknown]
  - Product use issue [Not Recovered/Not Resolved]
  - Epigastric discomfort [Not Recovered/Not Resolved]
  - Intentional product use issue [Not Recovered/Not Resolved]

NARRATIVE: CASE EVENT DATE: 201704
